FAERS Safety Report 13126422 (Version 1)
Quarter: 2017Q1

REPORT INFORMATION
  Report Type: Report from Study
  Country: BR (occurrence: BR)
  Receive Date: 20170118
  Receipt Date: 20170118
  Transmission Date: 20170428
  Serious: Yes (Other)
  Sender: FDA-Public Use
  Company Number: BR-ALEXION PHARMACEUTICALS INC-A201609956

PATIENT
  Age: 31 Year
  Sex: Female

DRUGS (2)
  1. SOLIRIS [Suspect]
     Active Substance: ECULIZUMAB
     Indication: PAROXYSMAL NOCTURNAL HAEMOGLOBINURIA
     Dosage: UNK
     Route: 042
     Dates: start: 20130712
  2. CYCLOSPORINE. [Concomitant]
     Active Substance: CYCLOSPORINE
     Indication: PRODUCT USED FOR UNKNOWN INDICATION
     Dosage: UNK
     Route: 065
     Dates: end: 201609

REACTIONS (10)
  - Contusion [Unknown]
  - Asthenia [Unknown]
  - Lethargy [Unknown]
  - Blood lactate dehydrogenase increased [Unknown]
  - Malaise [Unknown]
  - Pancytopenia [Unknown]
  - Aplastic anaemia [Unknown]
  - Mucosal haemorrhage [Unknown]
  - Bedridden [Unknown]
  - Intravascular haemolysis [Unknown]
